APPROVED DRUG PRODUCT: CHLORTHALIDONE
Active Ingredient: CHLORTHALIDONE
Strength: 25MG
Dosage Form/Route: TABLET;ORAL
Application: A209162 | Product #001 | TE Code: AB
Applicant: IPCA LABORATORIES LTD
Approved: Nov 12, 2024 | RLD: No | RS: No | Type: RX